FAERS Safety Report 10231547 (Version 1)
Quarter: 2014Q2

REPORT INFORMATION
  Report Type: Spontaneous
  Country: US (occurrence: US)
  Receive Date: 20140611
  Receipt Date: 20140611
  Transmission Date: 20141212
  Serious: Yes (Other)
  Sender: FDA-Public Use
  Company Number: US-ROXANE LABORATORIES, INC.-2014-RO-00886RO

PATIENT
  Age: 62 Year
  Sex: Male

DRUGS (13)
  1. OXYCODONE [Suspect]
     Indication: PAIN
     Route: 048
  2. TRAMADOL [Suspect]
     Indication: PAIN
     Route: 048
  3. TRAZODONE [Suspect]
     Indication: INSOMNIA
     Route: 048
  4. BUPROPION SA [Suspect]
     Indication: DEPRESSION
     Dosage: 300 MG
     Route: 048
  5. HEPARIN [Concomitant]
     Route: 030
  6. RANITIDINE [Concomitant]
     Dosage: 300 MG
     Route: 048
  7. DOCUSATE [Concomitant]
     Dosage: 200 MG
     Route: 048
  8. ACETAMINOPHEN [Concomitant]
     Indication: PAIN
     Route: 048
  9. POLYETHYLENE GLYCOL [Concomitant]
     Indication: CONSTIPATION
     Route: 048
  10. CALCIUM/VITAMIN D [Concomitant]
     Route: 048
  11. THIAMINE [Concomitant]
     Dosage: 100 MG
     Route: 048
  12. FOLATE [Concomitant]
     Dosage: 1 MG
     Route: 048
  13. MULTIVITAMIN [Concomitant]
     Route: 048

REACTIONS (7)
  - Serotonin syndrome [Recovered/Resolved]
  - Anaemia macrocytic [Unknown]
  - Humerus fracture [None]
  - Patella fracture [None]
  - Fall [None]
  - Alcohol poisoning [None]
  - Blood urea increased [None]
